FAERS Safety Report 13059952 (Version 1)
Quarter: 2016Q4

REPORT INFORMATION
  Report Type: Spontaneous
  Country: DE (occurrence: DE)
  Receive Date: 20161223
  Receipt Date: 20161223
  Transmission Date: 20170207
  Serious: Yes (Other)
  Sender: FDA-Public Use
  Company Number: GXKR2016DE005871

PATIENT
  Sex: Male

DRUGS (3)
  1. ASS ^HEXAL^ [Concomitant]
     Active Substance: ASPIRIN
     Indication: PRODUCT USED FOR UNKNOWN INDICATION
     Route: 065
  2. AMOXI 1A PHARMA [Suspect]
     Active Substance: AMOXICILLIN
     Indication: OSTEITIS
     Dosage: 1000 MG, TID
     Route: 065
  3. TAMSULOSIN 1A PHARMA [Concomitant]
     Indication: PRODUCT USED FOR UNKNOWN INDICATION
     Route: 065

REACTIONS (4)
  - Genital haemorrhage [Unknown]
  - Pruritus genital [Unknown]
  - Genital swelling [Unknown]
  - Lip swelling [Unknown]
